FAERS Safety Report 22626833 (Version 5)
Quarter: 2024Q3

REPORT INFORMATION
  Report Type: Report from Study
  Country: US (occurrence: US)
  Receive Date: 20230622
  Receipt Date: 20240731
  Transmission Date: 20241017
  Serious: No
  Sender: DECIPHERA PHARMACEUTICALS
  Company Number: US-DECIPHERA PHARMACEUTICALS LLC-2023US000543

PATIENT
  Age: 66 Year
  Sex: Male

DRUGS (9)
  1. QINLOCK [Suspect]
     Active Substance: RIPRETINIB
     Indication: Gastrointestinal stromal tumour
     Dosage: 150 MILLIGRAM, QD
     Route: 048
     Dates: start: 20210523, end: 2021
  2. QINLOCK [Suspect]
     Active Substance: RIPRETINIB
     Dosage: 250 MILLIGRAM, QD, 5 TABLETS A DAY
     Route: 048
     Dates: start: 20210625
  3. QINLOCK [Suspect]
     Active Substance: RIPRETINIB
     Dosage: 200 MILLIGRAM, QD, FOUR TABLETS A DAY
     Route: 048
     Dates: start: 20230608
  4. QINLOCK [Suspect]
     Active Substance: RIPRETINIB
     Dosage: 300 MILLIGRAM, QD
     Route: 048
     Dates: start: 20230716, end: 2023
  5. QINLOCK [Suspect]
     Active Substance: RIPRETINIB
     Dosage: 150 MILLIGRAM, QD
     Route: 048
     Dates: start: 20230716
  6. NIFEDIPINE [Concomitant]
     Active Substance: NIFEDIPINE
     Indication: Hypertension
     Dosage: UNK
     Route: 048
  7. NIFEDIPINE [Concomitant]
     Active Substance: NIFEDIPINE
     Dosage: 30 MILLIGRAM, QD
     Route: 048
  8. HYDRALAZINE [Concomitant]
     Active Substance: HYDRALAZINE HYDROCHLORIDE
     Indication: Hypertension
     Dosage: UNK
  9. HYDRALAZINE [Concomitant]
     Active Substance: HYDRALAZINE HYDROCHLORIDE
     Dosage: UNK, BID

REACTIONS (3)
  - Neoplasm progression [Not Recovered/Not Resolved]
  - Extra dose administered [Unknown]
  - Inappropriate schedule of product administration [Unknown]

NARRATIVE: CASE EVENT DATE: 20210516
